FAERS Safety Report 5901163-9 (Version None)
Quarter: 2008Q3

REPORT INFORMATION
  Report Type: 
  Country: None (occurrence: None)
  Receive Date: 20080925
  Receipt Date: 20080912
  Transmission Date: 20090109
  Serious: Yes (Hospitalization)
  Sender: FDA-Public Use
  Company Number: TPH-00073

PATIENT
  Age: 3 Year
  Sex: Male

DRUGS (1)
  1. TRISISTON [Suspect]
     Indication: ACCIDENTAL DRUG INTAKE BY CHILD
     Dosage: 21 DF ORAL
     Route: 048
     Dates: start: 20080714, end: 20080714

REACTIONS (3)
  - ACCIDENTAL DRUG INTAKE BY CHILD [None]
  - ACCIDENTAL OVERDOSE [None]
  - HYPOSPADIAS [None]
